FAERS Safety Report 19355092 (Version 3)
Quarter: 2021Q3

REPORT INFORMATION
  Report Type: Spontaneous
  Country: US (occurrence: US)
  Receive Date: 20210601
  Receipt Date: 20210816
  Transmission Date: 20211014
  Serious: No
  Sender: FDA-Public Use
  Company Number: US-BAUSCH-BL-2021-018666

PATIENT
  Age: 53 Year
  Sex: Male
  Weight: 118.04 kg

DRUGS (1)
  1. PLENVU [Suspect]
     Active Substance: ASCORBIC ACID\POLYETHYLENE GLYCOL 3350\POTASSIUM CHLORIDE\SODIUM ASCORBATE\SODIUM CHLORIDE\SODIUM SULFATE
     Indication: BOWEL PREPARATION
     Route: 048
     Dates: start: 20210414, end: 202104

REACTIONS (3)
  - Dysgeusia [Recovered/Resolved]
  - Nausea [Recovered/Resolved]
  - Product use complaint [Unknown]

NARRATIVE: CASE EVENT DATE: 202104
